FAERS Safety Report 24710369 (Version 2)
Quarter: 2025Q4

REPORT INFORMATION
  Report Type: Report from Study
  Country: US (occurrence: US)
  Receive Date: 20241209
  Receipt Date: 20251002
  Transmission Date: 20260117
  Serious: Yes (Other)
  Sender: UCB
  Company Number: US-UCBSA-2024063745

PATIENT
  Age: 13 Year
  Sex: Female
  Weight: 65.3 kg

DRUGS (2)
  1. FINTEPLA [Suspect]
     Active Substance: FENFLURAMINE
     Indication: Lennox-Gastaut syndrome
     Dosage: 0.68 MG/KG/DAY
     Dates: start: 202306
  2. FINTEPLA [Suspect]
     Active Substance: FENFLURAMINE
     Dosage: 0.57 MILLIGRAM/KILOGRAM (37.4 MG/DAY)

REACTIONS (2)
  - Tricuspid valve incompetence [Unknown]
  - Left ventricular dysfunction [Unknown]

NARRATIVE: CASE EVENT DATE: 20241111
